FAERS Safety Report 8793176 (Version 2)
Quarter: 2012Q4

REPORT INFORMATION
  Report Type: 
  Country: US (occurrence: US)
  Receive Date: 20120918
  Receipt Date: 20121211
  Transmission Date: 20130627
  Serious: Yes (Other)
  Sender: FDA-Public Use
  Company Number: US-ELI_LILLY_AND_COMPANY-US201208003598

PATIENT
  Age: 65 None
  Sex: Female
  Weight: 52.15 kg

DRUGS (9)
  1. BYDUREON [Suspect]
     Indication: TYPE 2 DIABETES MELLITUS
     Dosage: 2 mg, weekly (1/W)
     Route: 058
     Dates: start: 20120810
  2. BYDUREON [Suspect]
     Dosage: 2 mg, weekly (1/W)
     Route: 058
     Dates: start: 20120810
  3. BYETTA [Suspect]
     Indication: TYPE 2 DIABETES MELLITUS
     Dosage: 10 ug, bid
     Route: 058
     Dates: start: 2005, end: 20120811
  4. HUMALOG [Concomitant]
     Indication: TYPE 2 DIABETES MELLITUS
     Dosage: 12 u, bid
     Route: 058
     Dates: start: 20120729
  5. HUMALOG [Concomitant]
     Dosage: 10 u, bid
     Route: 058
     Dates: start: 201208, end: 20120909
  6. HUMALOG [Concomitant]
     Dosage: 6 u, bid
     Route: 058
     Dates: start: 20120909
  7. LANTUS [Concomitant]
     Indication: TYPE 2 DIABETES MELLITUS
     Dosage: 10 u, qd
     Route: 058
     Dates: end: 20120728
  8. METFORMIN [Concomitant]
     Indication: TYPE 2 DIABETES MELLITUS
     Dosage: UNK
     Route: 048
     Dates: start: 2005
  9. LEVOXYL [Concomitant]
     Indication: HYPOTHYROIDISM
     Dosage: UNK, qd
     Route: 048
     Dates: start: 201207

REACTIONS (13)
  - Heart rate increased [Not Recovered/Not Resolved]
  - Blood glucose increased [Recovering/Resolving]
  - Glycosylated haemoglobin increased [Recovering/Resolving]
  - Hypothyroidism [Not Recovered/Not Resolved]
  - Weight increased [Unknown]
  - Injection site haemorrhage [Not Recovered/Not Resolved]
  - Blood glucose decreased [Recovering/Resolving]
  - Injection site bruising [Not Recovered/Not Resolved]
  - Tremor [Recovering/Resolving]
  - Asthenia [Recovering/Resolving]
  - Injection site nodule [Not Recovered/Not Resolved]
  - Off label use [Not Recovered/Not Resolved]
  - Underdose [Recovered/Resolved]
